FAERS Safety Report 20850627 (Version 1)
Quarter: 2022Q2

REPORT INFORMATION
  Report Type: Spontaneous
  Country: US (occurrence: None)
  Receive Date: 20220518
  Receipt Date: 20220518
  Transmission Date: 20220721
  Serious: Yes (Hospitalization)
  Sender: FDA-Public Use
  Company Number: None

PATIENT
  Age: 39 Year
  Sex: Female
  Weight: 65.3 kg

DRUGS (2)
  1. PAXLOVID [Suspect]
     Active Substance: NIRMATRELVIR\RITONAVIR
     Indication: COVID-19
     Dates: start: 20220424, end: 20220427
  2. TACROLIMUS [Concomitant]
     Active Substance: TACROLIMUS
     Dates: start: 20220401

REACTIONS (1)
  - Drug interaction [None]

NARRATIVE: CASE EVENT DATE: 20220425
